FAERS Safety Report 11663593 (Version 1)
Quarter: 2015Q4

REPORT INFORMATION
  Report Type: Spontaneous
  Country: US (occurrence: None)
  Receive Date: 20151026
  Receipt Date: 20151026
  Transmission Date: 20160304
  Serious: Yes (Other)
  Sender: FDA-Public Use
  Company Number: None

PATIENT
  Age: 64 Year
  Sex: Female
  Weight: 63.5 kg

DRUGS (7)
  1. MELOXICAM. [Concomitant]
     Active Substance: MELOXICAM
  2. LEVOFLOXACIN. [Suspect]
     Active Substance: LEVOFLOXACIN
     Indication: GASTROINTESTINAL INFECTION
     Dosage: TAKEN BY MOUTH
     Dates: start: 20151017, end: 20151021
  3. FISH OIL [Concomitant]
     Active Substance: FISH OIL
  4. VITAMIN E [Concomitant]
     Active Substance: .ALPHA.-TOCOPHEROL
  5. VITAMIN D [Concomitant]
     Active Substance: CHOLECALCIFEROL
  6. CARDIO-MAGNESIUM [Concomitant]
  7. MULTI-VITAMIN [Concomitant]
     Active Substance: .ALPHA.-TOCOPHEROL ACETATE, DL-\ASCORBIC ACID\CYANOCOBALAMIN\FLUORIDE ION\FOLIC ACID\NIACIN\PYRIDOXINE\RIBOFLAVIN\THIAMINE\VITAMIN A\VITAMIN D

REACTIONS (7)
  - Arthralgia [None]
  - Pain in extremity [None]
  - Tendon disorder [None]
  - Gait disturbance [None]
  - Swelling [None]
  - Musculoskeletal stiffness [None]
  - Tendon pain [None]

NARRATIVE: CASE EVENT DATE: 20151017
